FAERS Safety Report 6753833-0 (Version None)
Quarter: 2010Q2

REPORT INFORMATION
  Report Type: 
  Country: None (occurrence: None)
  Receive Date: 20100603
  Receipt Date: 20100524
  Transmission Date: 20101027
  Serious: Yes (Life-Threatening, Other)
  Sender: FDA-Public Use
  Company Number: JP-PFIZER INC-2010066585

PATIENT
  Age: 82 Year
  Sex: Female

DRUGS (11)
  1. UNASYN [Suspect]
     Indication: BRONCHITIS
     Dosage: 1.5 G, 2X/DAY
     Route: 042
     Dates: start: 20100519, end: 20100520
  2. GLICLAZIDE [Suspect]
  3. BENIDIPINE HYDROCHLORIDE [Suspect]
     Dates: start: 20100519
  4. GLYCORAN [Suspect]
     Dates: start: 20100519
  5. LASIX [Suspect]
     Dates: start: 20100519
  6. GLYBURIDE [Suspect]
     Dates: start: 20100519
  7. MIGLITOL [Suspect]
     Dates: start: 20100519
  8. LENDORMIN [Suspect]
     Dosage: UNK
     Dates: start: 20100518
  9. EVISTA [Suspect]
     Dosage: UNK
     Route: 048
     Dates: start: 20100518
  10. BAYASPIRIN [Suspect]
     Dosage: UNK
     Dates: start: 20100518
  11. GLUCOSE [Suspect]
     Indication: HYPOGLYCAEMIA
     Dosage: UNK
     Dates: start: 20100519, end: 20100520

REACTIONS (3)
  - CARDIO-RESPIRATORY ARREST [None]
  - TRACHEAL OEDEMA [None]
  - TUBULOINTERSTITIAL NEPHRITIS [None]
